FAERS Safety Report 10072181 (Version 1)
Quarter: 2014Q2

REPORT INFORMATION
  Report Type: Spontaneous
  Country: US (occurrence: None)
  Receive Date: 20140410
  Receipt Date: 20140410
  Transmission Date: 20141212
  Serious: Yes (Disabling)
  Sender: FDA-Public Use
  Company Number: None

PATIENT
  Age: 57 Year
  Sex: Female
  Weight: 61.24 kg

DRUGS (1)
  1. LIPITOR [Suspect]
     Indication: BLOOD CHOLESTEROL INCREASED
     Dosage: 1PILL AT NIGHT ONCE DAILY TAKEN BY MOUTH
     Route: 048

REACTIONS (4)
  - Dizziness [None]
  - Confusional state [None]
  - Disorientation [None]
  - Amnesia [None]
